FAERS Safety Report 17394933 (Version 1)
Quarter: 2020Q1

REPORT INFORMATION
  Report Type: Report from Study
  Country: None (occurrence: US)
  Receive Date: 20200210
  Receipt Date: 20200210
  Transmission Date: 20200409
  Serious: Yes (Death, Hospitalization, Other)
  Sender: FDA-Public Use
  Company Number: US-ABBVIE-19P-163-3179037-00

PATIENT
  Sex: Female

DRUGS (1)
  1. IMBRUVICA [Suspect]
     Active Substance: IBRUTINIB
     Indication: B-CELL LYMPHOMA
     Route: 048
     Dates: start: 20191121

REACTIONS (6)
  - Asthenia [Unknown]
  - Death [Fatal]
  - Urinary tract infection [Unknown]
  - Vision blurred [Unknown]
  - Candida infection [Unknown]
  - Atrial fibrillation [Unknown]
